FAERS Safety Report 20321863 (Version 1)
Quarter: 2022Q1

REPORT INFORMATION
  Report Type: Spontaneous
  Country: EC (occurrence: EC)
  Receive Date: 20220111
  Receipt Date: 20220111
  Transmission Date: 20220423
  Serious: Yes (Death, Hospitalization)
  Sender: FDA-Public Use
  Company Number: EC-BAXTER-2022BAX000470

PATIENT
  Age: 63 Year
  Sex: Female

DRUGS (2)
  1. DIANEAL PD-2 PERITONEAL DIALYSIS SOLUTION WITH DEXTROSE [Suspect]
     Active Substance: CALCIUM CHLORIDE\DEXTROSE\MAGNESIUM CHLORIDE\SODIUM CHLORIDE\SODIUM LACTATE
     Indication: Peritoneal dialysis
     Dosage: 2 BAGS
     Route: 033
     Dates: start: 20150820, end: 20211219
  2. DIANEAL PD-2 PERITONEAL DIALYSIS SOLUTION WITH DEXTROSE [Suspect]
     Active Substance: CALCIUM CHLORIDE\DEXTROSE\MAGNESIUM CHLORIDE\SODIUM CHLORIDE\SODIUM LACTATE
     Indication: Peritoneal dialysis
     Dosage: 2 BAGS
     Route: 033
     Dates: start: 20150820, end: 20211219

REACTIONS (3)
  - Cardiac arrest [Fatal]
  - Abdominal pain [Unknown]
  - Diabetic foot [Unknown]

NARRATIVE: CASE EVENT DATE: 20211201
